FAERS Safety Report 15918311 (Version 2)
Quarter: 2019Q2

REPORT INFORMATION
  Report Type: Spontaneous
  Country: DE (occurrence: DE)
  Receive Date: 20190205
  Receipt Date: 20190408
  Transmission Date: 20190711
  Serious: Yes (Death, Hospitalization, Other)
  Sender: FDA-Public Use
  Company Number: DE-TEVA-2019-DE-1006702

PATIENT
  Age: 54 Year
  Sex: Female

DRUGS (2)
  1. ESTREVA [Suspect]
     Active Substance: ESTRADIOL
     Indication: HORMONE REPLACEMENT THERAPY
     Dosage: 3 DOSAGE FORMS DAILY; PUFFS
     Route: 062
     Dates: start: 2015, end: 2018
  2. PROGESTAN [Suspect]
     Active Substance: PROGESTERONE
     Indication: PREVENTION OF ENDOMETRIAL HYPERPLASIA
     Dosage: 1 DOSAGE FORMS DAILY;
     Route: 048
     Dates: start: 2015

REACTIONS (5)
  - Condition aggravated [Unknown]
  - Epilepsy [Recovered/Resolved]
  - Epileptic aura [Unknown]
  - Epilepsy [Not Recovered/Not Resolved]
  - Epilepsy [Recovered/Resolved]

NARRATIVE: CASE EVENT DATE: 2018
